FAERS Safety Report 5351717-6 (Version None)
Quarter: 2007Q2

REPORT INFORMATION
  Report Type: 
  Country: None (occurrence: None)
  Receive Date: 20070521
  Receipt Date: 20070221
  Transmission Date: 20071010
  Serious: No
  Sender: FDA-Public Use
  Company Number: WAES 0702USA03953

PATIENT
  Age: 71 Year
  Sex: Female
  Weight: 72.1219 kg

DRUGS (8)
  1. JANUVIA [Suspect]
     Indication: DIABETES MELLITUS
     Dosage: 100 MG/ DAILY/ PO
     Route: 048
     Dates: start: 20061113, end: 20070122
  2. ACTOS [Concomitant]
  3. ADVAIR DISKUS 100/50 [Concomitant]
  4. ALTACE [Concomitant]
  5. CADUET [Concomitant]
  6. CATAPRES [Concomitant]
  7. DIOVAN [Concomitant]
  8. LASIX [Concomitant]

REACTIONS (10)
  - ABDOMINAL PAIN LOWER [None]
  - ALBUMIN URINE PRESENT [None]
  - ASTHENIA [None]
  - BLOOD ALBUMIN DECREASED [None]
  - BLOOD GLUCOSE INCREASED [None]
  - CONSTIPATION [None]
  - GLYCOSYLATED HAEMOGLOBIN INCREASED [None]
  - LETHARGY [None]
  - RENAL FAILURE [None]
  - WHITE BLOOD CELL COUNT INCREASED [None]
